FAERS Safety Report 13765424 (Version 5)
Quarter: 2017Q3

REPORT INFORMATION
  Report Type: Report from Study
  Country: US (occurrence: US)
  Receive Date: 20170718
  Receipt Date: 20170823
  Transmission Date: 20171127
  Serious: Yes (Life-Threatening, Hospitalization)
  Sender: FDA-Public Use
  Company Number: US-EISAI MEDICAL RESEARCH-EC-2017-029415

PATIENT
  Age: 46 Year
  Sex: Male

DRUGS (14)
  1. CLOTRIMAZOLE 1% [Concomitant]
     Active Substance: CLOTRIMAZOLE
  2. ASPIRIN. [Concomitant]
     Active Substance: ASPIRIN
  3. PLAVIX [Concomitant]
     Active Substance: CLOPIDOGREL BISULFATE
  4. LEVOTHYROXINE SODIUM. [Concomitant]
     Active Substance: LEVOTHYROXINE SODIUM
  5. ATORVASTATIN [Concomitant]
     Active Substance: ATORVASTATIN
  6. CXYCODONE IR [Concomitant]
  7. NAPROXEN. [Concomitant]
     Active Substance: NAPROXEN
  8. BENZOCAINE 20% [Concomitant]
     Active Substance: BENZOCAINE
  9. LENVATINIB [Suspect]
     Active Substance: LENVATINIB
     Indication: NON-SMALL CELL LUNG CANCER
     Route: 048
     Dates: start: 20160817, end: 20170714
  10. PEMBROLIZUMAB. [Suspect]
     Active Substance: PEMBROLIZUMAB
     Indication: NON-SMALL CELL LUNG CANCER
     Route: 041
     Dates: start: 20160817
  11. CARVEDILOL. [Concomitant]
     Active Substance: CARVEDILOL
  12. BUDESONIDE. [Concomitant]
     Active Substance: BUDESONIDE
  13. GABAPENTIN. [Concomitant]
     Active Substance: GABAPENTIN
  14. HYDROCORTISONE 1% [Concomitant]
     Active Substance: HYDROCORTISONE

REACTIONS (2)
  - Hydrocephalus [Recovered/Resolved with Sequelae]
  - Ruptured cerebral aneurysm [Recovered/Resolved with Sequelae]

NARRATIVE: CASE EVENT DATE: 20170715
